FAERS Safety Report 9088564 (Version 1)
Quarter: 2013Q1

REPORT INFORMATION
  Report Type: Spontaneous
  Country: US (occurrence: US)
  Receive Date: 20130201
  Receipt Date: 20130201
  Transmission Date: 20140127
  Serious: Yes (Hospitalization, Other)
  Sender: FDA-Public Use
  Company Number: US-ASTRAZENECA-2013SE05390

PATIENT
  Age: 658 Month
  Sex: Male
  Weight: 97.5 kg

DRUGS (8)
  1. CRESTOR [Suspect]
     Route: 048
  2. NIASPAN [Suspect]
     Indication: HIGH DENSITY LIPOPROTEIN DECREASED
     Dosage: 500 MG, ONE IN ONE DAY, AFTER DINNER
     Route: 065
     Dates: start: 201003
  3. LOSARTAN/HCTZ [Concomitant]
  4. NORVASC [Concomitant]
  5. LAMICTAL [Concomitant]
  6. SONATA SLEEPING PILL [Concomitant]
  7. VALIUM [Concomitant]
  8. HUMIRA [Concomitant]

REACTIONS (8)
  - Arterial occlusive disease [Recovered/Resolved]
  - Haemorrhage [Recovered/Resolved]
  - Flushing [Recovered/Resolved]
  - Anaemia [Unknown]
  - Back pain [Unknown]
  - Paraesthesia [Unknown]
  - Dyspnoea [Not Recovered/Not Resolved]
  - Myalgia [Unknown]
